FAERS Safety Report 12746729 (Version 3)
Quarter: 2016Q4

REPORT INFORMATION
  Report Type: Spontaneous
  Country: US (occurrence: US)
  Receive Date: 20160915
  Receipt Date: 20161227
  Transmission Date: 20170207
  Serious: Yes (Other)
  Sender: FDA-Public Use
  Company Number: US-BAYER-2016-178122

PATIENT
  Age: 26 Year
  Sex: Female
  Weight: 86.2 kg

DRUGS (3)
  1. MIRENA [Suspect]
     Active Substance: LEVONORGESTREL
     Dosage: 20 MCG/24HR, CONT
     Route: 015
     Dates: start: 20091223, end: 20140830
  2. MIRENA [Suspect]
     Active Substance: LEVONORGESTREL
  3. ANTIHYPERTENSIVES [Concomitant]
     Active Substance: UNSPECIFIED INGREDIENT
     Indication: BLOOD PRESSURE INCREASED
     Dosage: UNK
     Route: 048

REACTIONS (6)
  - Pain [None]
  - Fear [None]
  - Anxiety [None]
  - Uterine perforation [None]
  - Procedural pain [None]
  - Menorrhagia [None]

NARRATIVE: CASE EVENT DATE: 201408
